FAERS Safety Report 4850796-X (Version None)
Quarter: 2005Q4

REPORT INFORMATION
  Report Type: 
  Country: None (occurrence: None)
  Receive Date: 20051208
  Receipt Date: 20051117
  Transmission Date: 20060501
  Serious: No
  Sender: FDA-Public Use
  Company Number: DK200511002105

PATIENT

DRUGS (1)
  1. CYMBALTA [Suspect]

REACTIONS (1)
  - HEPATIC ENZYME INCREASED [None]
